FAERS Safety Report 13364364 (Version 1)
Quarter: 2017Q1

REPORT INFORMATION
  Report Type: Spontaneous
  Country: US (occurrence: US)
  Receive Date: 20170323
  Receipt Date: 20170323
  Transmission Date: 20170429
  Serious: No
  Sender: FDA-Public Use
  Company Number: US-ROCHE-1291695

PATIENT
  Age: 70 Year
  Sex: Male

DRUGS (12)
  1. ADVAIR HFA [Concomitant]
     Active Substance: FLUTICASONE PROPIONATE\SALMETEROL XINAFOATE
     Dosage: 500/50 ONE PUFF TWICE DAILY
     Route: 055
  2. LANSOPRAZOLE. [Concomitant]
     Active Substance: LANSOPRAZOLE
     Route: 048
  3. XOLAIR [Suspect]
     Active Substance: OMALIZUMAB
     Indication: ASTHMA
     Dosage: TOTAL 450 MG MONTHLY DOSE
     Route: 058
     Dates: start: 201308
  4. SINGULAIR [Concomitant]
     Active Substance: MONTELUKAST SODIUM
     Route: 048
  5. FLUTICASONE PROPIONATE. [Concomitant]
     Active Substance: FLUTICASONE PROPIONATE
     Dosage: ONE SPRAY IN NOSE EACH DAY
     Route: 045
  6. AMLODIPINE [Concomitant]
     Active Substance: AMLODIPINE BESYLATE
     Route: 048
  7. AMLODIPINE [Concomitant]
     Active Substance: AMLODIPINE BESYLATE
     Dosage: 50/40 MG
     Route: 048
  8. AMLODIPINE [Concomitant]
     Active Substance: AMLODIPINE BESYLATE
     Route: 048
  9. TERAZOSIN [Concomitant]
     Active Substance: TERAZOSIN\TERAZOSIN HYDROCHLORIDE
     Route: 048
  10. FINASTERIDE. [Concomitant]
     Active Substance: FINASTERIDE
     Route: 048
  11. METFORMIN [Concomitant]
     Active Substance: METFORMIN HYDROCHLORIDE
     Route: 048
  12. ALBUTEROL. [Concomitant]
     Active Substance: ALBUTEROL
     Dosage: ONE PUFF AS NEEDED
     Route: 055

REACTIONS (3)
  - Injection site pruritus [Unknown]
  - Injection site swelling [Unknown]
  - Blood glucose increased [Unknown]

NARRATIVE: CASE EVENT DATE: 201308
